FAERS Safety Report 11957604 (Version 1)
Quarter: 2016Q1

REPORT INFORMATION
  Report Type: Spontaneous
  Country: BR (occurrence: BR)
  Receive Date: 20160126
  Receipt Date: 20160126
  Transmission Date: 20160526
  Serious: Yes (Other)
  Sender: FDA-Public Use
  Company Number: BR-BRISTOL-MYERS SQUIBB COMPANY-BMS-2016-002470

PATIENT
  Sex: Female
  Weight: 77 kg

DRUGS (8)
  1. ENOXAPARIN [Concomitant]
     Active Substance: ENOXAPARIN
     Indication: THROMBOSIS
     Dosage: UNK
     Route: 065
  2. ELIQUIS [Suspect]
     Active Substance: APIXABAN
     Indication: THROMBOSIS PROPHYLAXIS
     Dosage: 0.5 TAB, Q12H
     Route: 065
     Dates: start: 201512
  3. NEBILET [Concomitant]
     Active Substance: NEBIVOLOL
     Indication: ADVERSE EVENT
     Dosage: 1 TAB, UNK
     Route: 065
  4. CRETOR [Concomitant]
     Indication: ADVERSE EVENT
     Dosage: 1 TAB, UNK
     Route: 065
  5. ANCORON [Concomitant]
     Active Substance: AMIODARONE HYDROCHLORIDE
     Indication: ADVERSE EVENT
     Dosage: 1 TAB, UNK
     Route: 065
  6. AAS [Concomitant]
     Active Substance: ASPIRIN
     Indication: THROMBOSIS PROPHYLAXIS
     Dosage: 1 TAB, UNK
     Route: 065
  7. WARFARIN [Concomitant]
     Active Substance: WARFARIN
     Indication: THROMBOSIS
     Dosage: 5 MG, UNK
     Route: 065
  8. BRASART [Concomitant]
     Active Substance: VALSARTAN
     Indication: ADVERSE EVENT
     Dosage: 1 TAB, UNK
     Route: 065

REACTIONS (2)
  - Lymphoma [Unknown]
  - Wrong technique in product usage process [Unknown]
